FAERS Safety Report 15494157 (Version 2)
Quarter: 2025Q4

REPORT INFORMATION
  Report Type: Spontaneous
  Country: US (occurrence: US)
  Receive Date: 20181012
  Receipt Date: 20251204
  Transmission Date: 20260118
  Serious: No
  Sender: NOVARTIS
  Company Number: PHEH2018US042756

PATIENT
  Sex: Male

DRUGS (1)
  1. PROMACTA [Suspect]
     Active Substance: ELTROMBOPAG OLAMINE
     Indication: Aplasia pure red cell
     Dosage: 150 MG, QD
     Route: 048
     Dates: start: 20180515

REACTIONS (1)
  - Hair growth abnormal [Unknown]
